FAERS Safety Report 7581097-7 (Version None)
Quarter: 2011Q2

REPORT INFORMATION
  Report Type: 
  Country: None (occurrence: None)
  Receive Date: 20110610
  Receipt Date: 20110601
  Transmission Date: 20111010
  Serious: Yes (Other)
  Sender: FDA-Public Use
  Company Number: 2011028772

PATIENT
  Age: 80 Year
  Sex: Female
  Weight: 79.3795 kg

DRUGS (10)
  1. HIZENTRA [Suspect]
     Indication: IMMUNODEFICIENCY COMMON VARIABLE
     Dosage: 12 G 1X/WEEK, 60 ML IN 3-4 SITES OVER 2 HOURS, SUBCUTANEOUS
     Route: 058
     Dates: start: 20110323
  2. BISOPROLOL FUMARATE [Concomitant]
  3. TRAZODONE HCL [Concomitant]
  4. ADVAIR HFA [Concomitant]
  5. ALBUTEROL [Concomitant]
  6. OXYBUTRIN (OXYBUTYNIN) [Concomitant]
  7. CARAFATE [Concomitant]
  8. SINGULAIR [Concomitant]
  9. DIOVAN [Concomitant]
  10. LOPERAMIDE [Concomitant]

REACTIONS (1)
  - UPPER RESPIRATORY TRACT INFECTION [None]
